FAERS Safety Report 5809655-8 (Version None)
Quarter: 2008Q3

REPORT INFORMATION
  Report Type: 
  Country: None (occurrence: None)
  Receive Date: 20080715
  Receipt Date: 20080704
  Transmission Date: 20090109
  Serious: Yes (Hospitalization)
  Sender: FDA-Public Use
  Company Number: JP-ELI_LILLY_AND_COMPANY-JP200807002391

PATIENT
  Age: 76 Year
  Sex: Female

DRUGS (1)
  1. ZYPREXA [Suspect]
     Dosage: 7.5 MG, UNK
     Route: 048
     Dates: end: 20080630

REACTIONS (1)
  - PNEUMONIA ASPIRATION [None]
